FAERS Safety Report 19071602 (Version 1)
Quarter: 2021Q1

REPORT INFORMATION
  Report Type: Spontaneous
  Country: PL (occurrence: PL)
  Receive Date: 20210330
  Receipt Date: 20210330
  Transmission Date: 20210420
  Serious: Yes (Other)
  Sender: FDA-Public Use
  Company Number: PL-TEVA-2021-PL-1894843

PATIENT
  Sex: Male
  Weight: 60 kg

DRUGS (3)
  1. LEVETIRACETAM TEVA [Suspect]
     Active Substance: LEVETIRACETAM
     Indication: EPILEPSY
     Dosage: 1750 MG
     Route: 048
  2. NEUROTOP RETARD [Concomitant]
     Active Substance: CARBAMAZEPINE
  3. DEPAKINE CHRONO [Concomitant]
     Active Substance: VALPROATE SODIUM

REACTIONS (3)
  - Hyperammonaemia [Not Recovered/Not Resolved]
  - Mental disorder [Not Recovered/Not Resolved]
  - Anxiety disorder [Not Recovered/Not Resolved]
